FAERS Safety Report 20430519 (Version 1)
Quarter: 2022Q1

REPORT INFORMATION
  Report Type: Report from Study
  Country: NL (occurrence: NL)
  Receive Date: 20220204
  Receipt Date: 20220204
  Transmission Date: 20220423
  Serious: Yes (Death, Hospitalization)
  Sender: FDA-Public Use
  Company Number: NL-SERVIER-S20009902

PATIENT

DRUGS (7)
  1. PEGASPARGASE [Suspect]
     Active Substance: PEGASPARGASE
     Indication: Acute lymphocytic leukaemia
     Dosage: 1690 IU, UNK
     Route: 042
     Dates: start: 20200920, end: 20200920
  2. TN UNSPECIFIED [Concomitant]
     Indication: Acute lymphocytic leukaemia
     Dosage: 28 ?G, UNK
     Dates: start: 20200513, end: 20200526
  3. ADRIAMYCIN [Concomitant]
     Active Substance: DOXORUBICIN HYDROCHLORIDE
     Indication: Acute lymphocytic leukaemia
     Dosage: 42.2 MG, UNK
     Dates: start: 20200917, end: 20200924
  4. TN UNSPECIFIED [Concomitant]
     Indication: Acute lymphocytic leukaemia
     Dosage: 15 MG, UNK
     Route: 037
     Dates: start: 20200917, end: 20200917
  5. TN UNSPECIFIED [Concomitant]
     Indication: Acute lymphocytic leukaemia
     Dosage: 10 MG, UNK
     Dates: start: 20200917, end: 20200924
  6. TN UNSPECIFIED [Concomitant]
     Indication: Acute lymphocytic leukaemia
     Dosage: 10 MG, UNK
     Route: 048
     Dates: start: 20200917, end: 20200928
  7. TN UNSPECIFIED [Concomitant]
     Indication: Acute lymphocytic leukaemia
     Dosage: 25 MG, UNK
     Route: 037
     Dates: start: 20200917, end: 20200917

REACTIONS (3)
  - Pneumonia klebsiella [Fatal]
  - Lactic acidosis [Fatal]
  - Multiple organ dysfunction syndrome [Fatal]

NARRATIVE: CASE EVENT DATE: 20200928
